FAERS Safety Report 11470782 (Version 2)
Quarter: 2015Q3

REPORT INFORMATION
  Report Type: Spontaneous
  Country: US (occurrence: US)
  Receive Date: 20150903
  Receipt Date: 20150903
  Transmission Date: 20151125
  Serious: Yes (Other)
  Sender: FDA-Public Use
  Company Number: US-ELI_LILLY_AND_COMPANY-US201201002926

PATIENT
  Sex: Female

DRUGS (5)
  1. CYMBALTA [Suspect]
     Active Substance: DULOXETINE HYDROCHLORIDE
     Indication: FIBROMYALGIA
     Dosage: 60 MG, UNK
     Dates: start: 201109, end: 201111
  2. CYMBALTA [Suspect]
     Active Substance: DULOXETINE HYDROCHLORIDE
     Dosage: 30 MG, UNK
     Dates: start: 201112, end: 201112
  3. TRIAMTERENE. [Concomitant]
     Active Substance: TRIAMTERENE
  4. MELOXICAM. [Concomitant]
     Active Substance: MELOXICAM
  5. LORAZEPAM. [Concomitant]
     Active Substance: LORAZEPAM

REACTIONS (8)
  - Disorientation [Unknown]
  - Disturbance in attention [Unknown]
  - Serotonin syndrome [Unknown]
  - Depression [Unknown]
  - Affect lability [Unknown]
  - Palpitations [Unknown]
  - Muscle spasms [Unknown]
  - Feeling abnormal [Unknown]
